FAERS Safety Report 12675488 (Version 1)
Quarter: 2016Q3

REPORT INFORMATION
  Report Type: Spontaneous
  Country: US (occurrence: US)
  Receive Date: 20160823
  Receipt Date: 20160823
  Transmission Date: 20161109
  Serious: No
  Sender: FDA-Public Use
  Company Number: US-LUPIN PHARMACEUTICALS INC.-2016-03189

PATIENT
  Sex: Female

DRUGS (3)
  1. IBUPROFEN. [Suspect]
     Active Substance: IBUPROFEN
     Indication: OSTEOARTHRITIS
     Route: 065
  2. NAPROXEN. [Suspect]
     Active Substance: NAPROXEN
     Indication: OSTEOARTHRITIS
     Route: 065
  3. CELECOXIB CAPSULES 200 MG [Suspect]
     Active Substance: CELECOXIB
     Indication: OSTEOARTHRITIS
     Route: 065

REACTIONS (1)
  - Drug ineffective [Unknown]
